FAERS Safety Report 4424512-X (Version None)
Quarter: 2004Q3

REPORT INFORMATION
  Report Type: 
  Country: None (occurrence: None)
  Receive Date: 20040812
  Receipt Date: 20040723
  Transmission Date: 20050211
  Serious: Yes (Hospitalization)
  Sender: FDA-Public Use
  Company Number: US-ROCHE-375324

PATIENT
  Age: 49 Year
  Sex: Male
  Weight: 103.8 kg

DRUGS (4)
  1. PEGASYS [Suspect]
     Indication: HEPATITIS C
     Route: 058
     Dates: start: 20040618, end: 20040710
  2. COPEGUS [Suspect]
     Indication: HEPATITIS C
     Dosage: DOSAGE REGIMEN REPORTED AS SPLIT.
     Route: 048
     Dates: start: 20040618, end: 20040710
  3. CELEXA [Concomitant]
     Indication: DEPRESSION
     Route: 048
     Dates: start: 20040618
  4. UNKNOWN MEDICATION [Concomitant]
     Dosage: REPORTED AS PRERACID.
     Route: 048
     Dates: start: 20040101

REACTIONS (7)
  - DEHYDRATION [None]
  - DIARRHOEA [None]
  - HAEMATOCRIT DECREASED [None]
  - NAUSEA [None]
  - OESOPHAGITIS [None]
  - RASH [None]
  - VOMITING [None]
